FAERS Safety Report 7430744-9 (Version None)
Quarter: 2011Q2

REPORT INFORMATION
  Report Type: 
  Country: None (occurrence: None)
  Receive Date: 20110421
  Receipt Date: 20110413
  Transmission Date: 20111010
  Serious: Yes (Other)
  Sender: FDA-Public Use
  Company Number: GR-US-EMD SERONO, INC.-7023872

PATIENT
  Age: 39 Year
  Sex: Female

DRUGS (4)
  1. REBIF [Suspect]
     Indication: MULTIPLE SCLEROSIS
     Route: 058
  2. REBIF [Suspect]
     Route: 058
     Dates: start: 20100913
  3. PLAQUENIL [Concomitant]
  4. SALOSPIR [Concomitant]

REACTIONS (2)
  - MIDDLE INSOMNIA [None]
  - RHEUMATOID ARTHRITIS [None]
